FAERS Safety Report 6427933-9 (Version None)
Quarter: 2009Q4

REPORT INFORMATION
  Report Type: 
  Country: None (occurrence: None)
  Receive Date: 20091105
  Receipt Date: 20091026
  Transmission Date: 20100525
  Serious: Yes (Other)
  Sender: FDA-Public Use
  Company Number: ES-ROCHE-578862

PATIENT
  Age: 66 Year
  Sex: Female

DRUGS (2)
  1. XELODA [Suspect]
     Indication: COLON CANCER
     Dosage: FORMULATION: FILM COATED TABLET.
     Route: 048
     Dates: start: 20071122, end: 20080204
  2. ELOXATIN [Suspect]
     Indication: COLON CANCER
     Dosage: FORMULATION: VIAL
     Route: 042
     Dates: start: 20071121, end: 20080201

REACTIONS (1)
  - CUTANEOUS LUPUS ERYTHEMATOSUS [None]
